FAERS Safety Report 5386817-8 (Version None)
Quarter: 2007Q3

REPORT INFORMATION
  Report Type: 
  Country: None (occurrence: None)
  Receive Date: 20070713
  Receipt Date: 20070702
  Transmission Date: 20080115
  Serious: Yes (Death, Hospitalization, Other)
  Sender: FDA-Public Use
  Company Number: US-PFIZER INC-2006150407

PATIENT
  Sex: Male
  Weight: 81.6 kg

DRUGS (10)
  1. CELEBREX [Suspect]
     Indication: PAIN
     Route: 048
  2. VIOXX [Suspect]
     Indication: ARTHRALGIA
     Route: 048
     Dates: start: 20030917
  3. VIOXX [Suspect]
     Indication: PAIN IN EXTREMITY
  4. CLONIDINE [Concomitant]
     Indication: HYPERTENSION
  5. DIGITEK [Concomitant]
     Indication: CARDIAC DISORDER
     Dates: start: 20030102
  6. DIOVAN HCT [Concomitant]
     Indication: HYPERTENSION
  7. FUROSEMIDE [Concomitant]
     Indication: HYPERTENSION
  8. PREDNISOLONE [Concomitant]
     Indication: EYE IRRITATION
  9. TERAZOSIN HCL [Concomitant]
     Indication: HYPERTENSION
  10. ZOCOR [Concomitant]
     Indication: BLOOD CHOLESTEROL INCREASED

REACTIONS (3)
  - CARDIAC FAILURE CONGESTIVE [None]
  - CARDIOVASCULAR DISORDER [None]
  - CEREBROVASCULAR ACCIDENT [None]
